FAERS Safety Report 13697272 (Version 2)
Quarter: 2017Q3

REPORT INFORMATION
  Report Type: Spontaneous
  Country: CN (occurrence: CN)
  Receive Date: 20170628
  Receipt Date: 20170706
  Transmission Date: 20171127
  Serious: Yes (Other)
  Sender: FDA-Public Use
  Company Number: CN-ROCHE-1954870

PATIENT
  Age: 52 Year
  Sex: Female

DRUGS (6)
  1. GEMCITABINE [Suspect]
     Active Substance: GEMCITABINE\GEMCITABINE HYDROCHLORIDE
     Indication: METASTASES TO LIVER
  2. HERCEPTIN [Suspect]
     Active Substance: TRASTUZUMAB
     Indication: BREAST CANCER
     Dosage: LOADING DOSE
     Route: 041
     Dates: start: 20170615, end: 20170615
  3. HERCEPTIN [Suspect]
     Active Substance: TRASTUZUMAB
     Indication: METASTASES TO LIVER
     Route: 041
     Dates: start: 20170622
  4. GEMCITABINE [Suspect]
     Active Substance: GEMCITABINE\GEMCITABINE HYDROCHLORIDE
     Indication: BREAST CANCER RECURRENT
     Route: 065
     Dates: start: 20170607
  5. VINORELBINE [Suspect]
     Active Substance: VINORELBINE\VINORELBINE TARTRATE
     Indication: BREAST CANCER RECURRENT
     Route: 065
     Dates: start: 20170607
  6. VINORELBINE [Suspect]
     Active Substance: VINORELBINE\VINORELBINE TARTRATE
     Indication: METASTASES TO LIVER

REACTIONS (6)
  - Urinary tract infection [Recovered/Resolved with Sequelae]
  - Breast cancer recurrent [Unknown]
  - Ejection fraction decreased [Unknown]
  - Bone marrow failure [Recovering/Resolving]
  - Platelet count decreased [Recovering/Resolving]
  - Hepatic function abnormal [Unknown]

NARRATIVE: CASE EVENT DATE: 20170616
